FAERS Safety Report 24293445 (Version 1)
Quarter: 2024Q3

REPORT INFORMATION
  Report Type: Spontaneous
  Country: US (occurrence: None)
  Receive Date: 20240906
  Receipt Date: 20240906
  Transmission Date: 20241017
  Serious: No
  Sender: DOMPE FARMACEUTICI
  Company Number: US-FARMAPROD-202308-202401-0174

PATIENT
  Sex: Female

DRUGS (11)
  1. OXERVATE [Suspect]
     Active Substance: CENEGERMIN-BKBJ
     Indication: Dry eye
     Route: 047
     Dates: start: 20240102
  2. PREVIDENT [Concomitant]
     Active Substance: SODIUM FLUORIDE
     Dosage: PASTE (ML)
  3. METROGEL [Concomitant]
     Active Substance: METRONIDAZOLE
     Dosage: (GRAM)
  4. PATADAY ONCE DAILY RELIEF [Concomitant]
     Active Substance: OLOPATADINE HYDROCHLORIDE
  5. UNSPECIFIED INGREDIENT [Concomitant]
     Active Substance: UNSPECIFIED INGREDIENT
  6. SPIRONOLACTONE [Concomitant]
     Active Substance: SPIRONOLACTONE
  7. NORETHINDRONE-E.ESTRADIOL-IRON [Concomitant]
  8. REFRESH P.M. [Concomitant]
     Active Substance: MINERAL OIL\PETROLATUM
     Dosage: 42.5-57.3%
  9. RESTASIS [Concomitant]
     Active Substance: CYCLOSPORINE
  10. IRON [Concomitant]
     Active Substance: IRON
     Dosage: 236(27)
  11. VITAMINS [Concomitant]
     Active Substance: VITAMINS
     Dosage: GUMMIES

REACTIONS (3)
  - Off label use [Unknown]
  - Eye pain [Unknown]
  - Dry eye [Unknown]
